FAERS Safety Report 9316768 (Version 1)
Quarter: 2013Q2

REPORT INFORMATION
  Report Type: Spontaneous
  Country: AR (occurrence: AR)
  Receive Date: 20130530
  Receipt Date: 20130530
  Transmission Date: 20140414
  Serious: Yes (Hospitalization)
  Sender: FDA-Public Use
  Company Number: AR-NOVOPROD-378525

PATIENT
  Age: 60 Year
  Sex: Female
  Weight: 115 kg

DRUGS (10)
  1. VICTOZA [Suspect]
     Indication: TYPE 2 DIABETES MELLITUS
     Dosage: 1.2 MG, QD
     Route: 058
     Dates: start: 201208, end: 20130504
  2. ATENOLOL [Concomitant]
     Dosage: 50 MG, QD
     Route: 048
  3. HYDROCHLOROTHIAZIDE [Concomitant]
     Dosage: 12.5 MG, QD
     Route: 048
  4. SPIRONOLACTONE [Concomitant]
     Dosage: 25 MG, QD
     Route: 048
  5. CLONAZEPAM [Concomitant]
     Dosage: 0.5 MG, QD
     Route: 048
  6. LOSARTAN POTASSIUM [Concomitant]
     Dosage: 50 MG, QD
     Route: 048
  7. CLOPIDOGREL [Concomitant]
     Dosage: 75 MG, QD
     Route: 048
     Dates: start: 2000
  8. ROSUVASTATINE [Concomitant]
     Dosage: 10 MG, QD
     Route: 048
     Dates: start: 2012
  9. LEVOTHYROXINE SODIUM [Concomitant]
     Dosage: 200 UG, QD
     Route: 048
     Dates: start: 2011
  10. INSULIN GLARGINE [Concomitant]
     Dosage: 60 IU, QD
     Route: 058
     Dates: start: 2008

REACTIONS (2)
  - Dyspnoea paroxysmal nocturnal [Recovered/Resolved]
  - Sinus tachycardia [Recovered/Resolved]
